FAERS Safety Report 11977118 (Version 1)
Quarter: 2016Q1

REPORT INFORMATION
  Report Type: Spontaneous
  Country: JP (occurrence: JP)
  Receive Date: 20160129
  Receipt Date: 20160129
  Transmission Date: 20160526
  Serious: Yes (Hospitalization)
  Sender: FDA-Public Use
  Company Number: JP-PFIZER INC-2015407965

PATIENT
  Age: 43 Year
  Sex: Female
  Weight: 48.3 kg

DRUGS (6)
  1. SODIUM FERROUS CITRATE [Concomitant]
     Active Substance: SODIUM FERROUS CITRATE
     Route: 048
  2. GENINAX [Concomitant]
     Active Substance: GARENOXACIN MESYLATE
     Dosage: 400 MG, DAILY
     Route: 048
     Dates: start: 20150830, end: 20150831
  3. MUCOSOLVAN L [Concomitant]
     Active Substance: AMBROXOL HYDROCHLORIDE
     Route: 048
  4. CEFTRIAXONE PFIZER [Suspect]
     Active Substance: CEFTRIAXONE
     Indication: PLEURISY
  5. CEFTRIAXONE PFIZER [Suspect]
     Active Substance: CEFTRIAXONE
     Indication: PNEUMONIA
     Dosage: 1 G, 3X/DAY
     Route: 041
     Dates: start: 20150821, end: 20150829
  6. CELECOX [Concomitant]
     Active Substance: CELECOXIB

REACTIONS (1)
  - Cholelithiasis [Recovering/Resolving]

NARRATIVE: CASE EVENT DATE: 20150831
